FAERS Safety Report 7617405-8 (Version None)
Quarter: 2011Q3

REPORT INFORMATION
  Report Type: 
  Country: None (occurrence: None)
  Receive Date: 20110718
  Receipt Date: 20110711
  Transmission Date: 20111222
  Serious: No
  Sender: FDA-Public Use
  Company Number: US-PFIZER INC-2011156333

PATIENT
  Sex: Male
  Weight: 58.957 kg

DRUGS (1)
  1. IBUPROFEN (ADVIL) [Suspect]
     Indication: BACK PAIN
     Dosage: 200 MG, 9X/DAY
     Route: 048
     Dates: start: 20110706, end: 20110710

REACTIONS (1)
  - MUSCLE SPASMS [None]
